FAERS Safety Report 6369140-4 (Version None)
Quarter: 2009Q3

REPORT INFORMATION
  Report Type: 
  Country: None (occurrence: None)
  Receive Date: 20090918
  Receipt Date: 20090918
  Transmission Date: 20100115
  Serious: Yes (Hospitalization)
  Sender: FDA-Public Use
  Company Number: None

PATIENT
  Age: 75 Year
  Sex: Male

DRUGS (3)
  1. KETOROLAC TROMETHAMINE [Suspect]
     Indication: INFECTION
     Dates: start: 20090912, end: 20090912
  2. KETOROLAC TROMETHAMINE [Suspect]
     Indication: PAIN
     Dates: start: 20090912, end: 20090912
  3. LEVOFLOXACIN [Suspect]
     Dates: start: 20090912, end: 20090912

REACTIONS (9)
  - AGITATION [None]
  - ANAPHYLACTIC REACTION [None]
  - ANGIOEDEMA [None]
  - ERYTHEMA [None]
  - PROSTATIC PAIN [None]
  - PRURITUS [None]
  - RASH [None]
  - SINUS TACHYCARDIA [None]
  - URTICARIA [None]
